FAERS Safety Report 7992359-3 (Version None)
Quarter: 2011Q4

REPORT INFORMATION
  Report Type: 
  Country: None (occurrence: None)
  Receive Date: 20111219
  Receipt Date: 20110316
  Transmission Date: 20120403
  Serious: No
  Sender: FDA-Public Use
  Company Number: US-ASTRAZENECA-2011SE03797

PATIENT
  Age: 64 Year
  Sex: Male
  Weight: 86.2 kg

DRUGS (4)
  1. ANXIETY MED [Concomitant]
  2. SLEEP MED [Concomitant]
  3. CRESTOR [Suspect]
     Indication: HYPERCHOLESTEROLAEMIA
     Route: 048
     Dates: start: 20100101
  4. BLOOD PRESSURE MEDS [Concomitant]

REACTIONS (5)
  - INTERVERTEBRAL DISC DISORDER [None]
  - MUSCULOSKELETAL STIFFNESS [None]
  - MUSCULOSKELETAL DISORDER [None]
  - SPINAL COLUMN STENOSIS [None]
  - LIMB INJURY [None]
